FAERS Safety Report 20536073 (Version 1)
Quarter: 2022Q1

REPORT INFORMATION
  Report Type: Spontaneous
  Country: US (occurrence: None)
  Receive Date: 20220302
  Receipt Date: 20220302
  Transmission Date: 20220423
  Serious: No
  Sender: FDA-Public Use
  Company Number: US-ROCHE-2755443

PATIENT
  Age: 2 Year
  Sex: Female
  Weight: 18 kg

DRUGS (8)
  1. NUTROPIN [Suspect]
     Active Substance: SOMATROPIN
     Indication: Prader-Willi syndrome
     Dosage: THERAPY STATUS : ONGOING : YES, FREQUENCY: DAILY
     Route: 058
     Dates: start: 20200610
  2. NUTROPIN [Suspect]
     Active Substance: SOMATROPIN
  3. TYLENOL [Concomitant]
     Active Substance: ACETAMINOPHEN
     Route: 048
     Dates: start: 20200717
  4. MOTRIN [Concomitant]
     Active Substance: IBUPROFEN
     Dosage: 17/JUL/2021
     Route: 048
  5. NEXIUM [Concomitant]
     Active Substance: ESOMEPRAZOLE MAGNESIUM
     Dates: start: 20200624
  6. ZYRTEC (UNITED STATES) [Concomitant]
     Dates: start: 20200930
  7. FLONASE [Concomitant]
     Active Substance: FLUTICASONE PROPIONATE
     Dosage: 1 SPRAY
     Dates: start: 20210304
  8. SINGULAIR [Concomitant]
     Active Substance: MONTELUKAST SODIUM

REACTIONS (3)
  - Off label use [Unknown]
  - Product administration error [Unknown]
  - Injection site pain [Recovering/Resolving]

NARRATIVE: CASE EVENT DATE: 20200610
